FAERS Safety Report 4310920-4 (Version None)
Quarter: 2004Q1

REPORT INFORMATION
  Report Type: 
  Country: None (occurrence: None)
  Receive Date: 20040302
  Receipt Date: 20040220
  Transmission Date: 20041129
  Serious: Yes (Hospitalization)
  Sender: FDA-Public Use
  Company Number: JRFUSA2000000482

PATIENT
  Age: 72 Year
  Sex: Male

DRUGS (3)
  1. PROPULSID [Suspect]
     Indication: GASTROOESOPHAGEAL REFLUX DISEASE
     Dosage: 20 MG , 3 IN 1 DAY, ORAL
     Route: 048
     Dates: start: 19970101, end: 19991122
  2. PRILOSEC [Concomitant]
  3. XANAX [Concomitant]

REACTIONS (7)
  - CEREBROVASCULAR ACCIDENT [None]
  - DYSARTHRIA [None]
  - FEELING ABNORMAL [None]
  - GASTROOESOPHAGEAL REFLUX DISEASE [None]
  - HYPOAESTHESIA [None]
  - OESOPHAGEAL STENOSIS [None]
  - TRANSIENT ISCHAEMIC ATTACK [None]
